FAERS Safety Report 8381947-0 (Version None)
Quarter: 2012Q2

REPORT INFORMATION
  Report Type: 
  Country: None (occurrence: None)
  Receive Date: 20120524
  Receipt Date: 20120509
  Transmission Date: 20120825
  Serious: Yes (Hospitalization)
  Sender: FDA-Public Use
  Company Number: CA-JNJFOC-20120510350

PATIENT
  Sex: Female
  Weight: 56.7 kg

DRUGS (4)
  1. REMICADE [Suspect]
     Indication: CROHN'S DISEASE
     Route: 042
     Dates: start: 20070614
  2. HYDROMORPHONE HCL [Concomitant]
     Route: 065
  3. MESALAMINE [Concomitant]
     Dosage: 4000 (UNITS UNSPECIFIED)
     Route: 065
  4. VALTREX [Concomitant]
     Route: 065

REACTIONS (1)
  - UTERINE DILATION AND CURETTAGE [None]
